FAERS Safety Report 15778464 (Version 2)
Quarter: 2019Q1

REPORT INFORMATION
  Report Type: Report from Study
  Country: CH (occurrence: CH)
  Receive Date: 20181231
  Receipt Date: 20190111
  Transmission Date: 20190417
  Serious: Yes (Hospitalization)
  Sender: FDA-Public Use
  Company Number: CH-SAOL THERAPEUTICS-2018SAO01133

PATIENT
  Sex: Female
  Weight: 50 kg

DRUGS (1)
  1. LIORESAL [Suspect]
     Active Substance: BACLOFEN
     Dosage: 1050.1 ?G, \DAY
     Route: 037

REACTIONS (3)
  - Device infusion issue [Recovered/Resolved]
  - Product dose omission [Recovered/Resolved]
  - Muscle spasticity [Recovered/Resolved]

NARRATIVE: CASE EVENT DATE: 20170612
